FAERS Safety Report 4395135-6 (Version None)
Quarter: 2004Q3

REPORT INFORMATION
  Report Type: 
  Country: None (occurrence: None)
  Receive Date: 20040706
  Receipt Date: 20040625
  Transmission Date: 20050211
  Serious: Yes (Life-Threatening)
  Sender: FDA-Public Use
  Company Number: 2004213399AU

PATIENT
  Age: 45 Year
  Sex: Female
  Weight: 112.6 kg

DRUGS (3)
  1. ZAVEDOS (IDARUBICIN HYDROCHLORIDE)POWDER, STERILE [Suspect]
     Indication: ACUTE MYELOID LEUKAEMIA
     Dosage: 17 MG, QD, CYCLE 1, IV
     Route: 042
     Dates: start: 20040512, end: 20040514
  2. CYTARABINE [Suspect]
     Indication: ACUTE MYELOID LEUKAEMIA
     Dosage: 5.7 G, BID, CYCLE 1, IV
     Route: 042
     Dates: start: 20040512, end: 20040518
  3. ETOPOSIDE [Suspect]
     Indication: ACUTE MYELOID LEUKAEMIA
     Dosage: 140 MG, QD, IV
     Route: 042
     Dates: start: 20040512, end: 20040518

REACTIONS (11)
  - CIRCULATORY COLLAPSE [None]
  - COAGULOPATHY [None]
  - FLUID OVERLOAD [None]
  - HAEMODIALYSIS [None]
  - HYPOXIA [None]
  - LOSS OF CONSCIOUSNESS [None]
  - PYREXIA [None]
  - RENAL FAILURE ACUTE [None]
  - RENAL FAILURE CHRONIC [None]
  - TUMOUR LYSIS SYNDROME [None]
  - WHITE BLOOD CELL COUNT DECREASED [None]
